FAERS Safety Report 4795366-7 (Version None)
Quarter: 2005Q4

REPORT INFORMATION
  Report Type: 
  Country: None (occurrence: None)
  Receive Date: 20051007
  Receipt Date: 20051007
  Transmission Date: 20060501
  Serious: No
  Sender: FDA-Public Use
  Company Number: None

PATIENT
  Sex: Male
  Weight: 95.5 kg

DRUGS (2)
  1. GEODON [Suspect]
     Indication: SCHIZOPHRENIA
     Dosage: 160MG BID PO
     Route: 048
     Dates: start: 20050927, end: 20050929
  2. DIVALPROEX SODIUM [Concomitant]

REACTIONS (1)
  - SINUS TACHYCARDIA [None]
